FAERS Safety Report 6730229-9 (Version None)
Quarter: 2010Q2

REPORT INFORMATION
  Report Type: 
  Country: None (occurrence: None)
  Receive Date: 20100518
  Receipt Date: 20100518
  Transmission Date: 20101027
  Serious: Yes (Death)
  Sender: FDA-Public Use
  Company Number: None

PATIENT
  Age: 2 Month
  Sex: Male

DRUGS (6)
  1. CONCENTRATED TYLENOL INFANT DROPS [Suspect]
     Indication: VACCINATION SITE PAIN
     Dosage: 0.4ML 4 TO 6 HOURS ORAL
     Route: 048
     Dates: start: 20090218, end: 20090219
  2. TYLENOL CHILDREN'S SIMPLY SOOTHING SALINE DROPS/SPRAY [Suspect]
     Indication: NASAL CONGESTION
     Dosage: 1-2 DROPS NO MORE(1 OR 2)THAN 6 OR 8 TIMES A DAY, IN NOSTRIL
     Route: 045
     Dates: start: 20090219, end: 20090220
  3. DTAP-HEPB-IPV(PEDIATRIX) [Concomitant]
  4. HIB [Concomitant]
  5. PCV-7 [Concomitant]
  6. ROTAVIRUS [Concomitant]

REACTIONS (1)
  - DEATH [None]
